FAERS Safety Report 5636827-8 (Version None)
Quarter: 2008Q1

REPORT INFORMATION
  Report Type: 
  Country: None (occurrence: None)
  Receive Date: 20080220
  Receipt Date: 20080220
  Transmission Date: 20080703
  Serious: No
  Sender: FDA-Public Use
  Company Number: None

PATIENT
  Age: 58 Year
  Sex: Female
  Weight: 75.7507 kg

DRUGS (2)
  1. TOPROL-XL [Suspect]
     Indication: VENTRICULAR HYPOKINESIA
     Dosage: 25 MG ONCE A DAY PO
     Route: 048
     Dates: start: 20080208, end: 20080217
  2. METOPROLOL SUCCINATE EXTENDED RELEASE [Suspect]
     Indication: VENTRICULAR HYPOKINESIA
     Dosage: 25 MG ONCE A DAY PO
     Route: 048
     Dates: start: 20080104, end: 20080208

REACTIONS (6)
  - DIZZINESS [None]
  - FATIGUE [None]
  - FEELING ABNORMAL [None]
  - INFLUENZA [None]
  - LETHARGY [None]
  - STRESS [None]
